FAERS Safety Report 7689708-2 (Version None)
Quarter: 2011Q3

REPORT INFORMATION
  Report Type: 
  Country: None (occurrence: None)
  Receive Date: 20110817
  Receipt Date: 20110808
  Transmission Date: 20111222
  Serious: Yes (Other)
  Sender: FDA-Public Use
  Company Number: US-ASTRAZENECA-2010SE26994

PATIENT
  Age: 58 Year
  Sex: Male

DRUGS (1)
  1. NEXIUM [Suspect]
     Route: 048

REACTIONS (5)
  - ACCIDENT [None]
  - ABDOMINAL DISCOMFORT [None]
  - PNEUMOTHORAX [None]
  - DRUG DOSE OMISSION [None]
  - PNEUMONIA [None]
